FAERS Safety Report 18452805 (Version 3)
Quarter: 2021Q1

REPORT INFORMATION
  Report Type: Report from Study
  Country: DE (occurrence: DE)
  Receive Date: 20201102
  Receipt Date: 20210322
  Transmission Date: 20210419
  Serious: Yes (Hospitalization)
  Sender: FDA-Public Use
  Company Number: DE-JNJFOC-20201033750

PATIENT
  Age: 25 Year
  Sex: Male
  Weight: 93.9 kg

DRUGS (3)
  1. GUSELKUMAB [Suspect]
     Active Substance: GUSELKUMAB
  2. DOXYCYCLINE. [Concomitant]
     Active Substance: DOXYCYCLINE
     Indication: OTITIS EXTERNA
     Route: 048
     Dates: start: 20200814, end: 20200821
  3. GUSELKUMAB [Suspect]
     Active Substance: GUSELKUMAB
     Indication: PSORIASIS
     Dates: start: 20200728

REACTIONS (1)
  - Abscess of external auditory meatus [Recovered/Resolved]

NARRATIVE: CASE EVENT DATE: 20200826
